FAERS Safety Report 7454961-7 (Version None)
Quarter: 2011Q2

REPORT INFORMATION
  Report Type: 
  Country: None (occurrence: None)
  Receive Date: 20110503
  Receipt Date: 20110420
  Transmission Date: 20111010
  Serious: Yes (Other)
  Sender: FDA-Public Use
  Company Number: US-ELI_LILLY_AND_COMPANY-US201006002206

PATIENT
  Age: 31 Year
  Sex: Female
  Weight: 74.83 kg

DRUGS (5)
  1. SYMBYAX [Suspect]
     Indication: DEPRESSION
     Dosage: UNK, DAILY (1/D)
  2. SYMBYAX [Suspect]
     Dosage: 3/25MG, EVERY OTHER DAY
  3. SYMBYAX [Suspect]
     Dosage: UNK, QOD
  4. AMBIEN [Concomitant]
  5. SYMBYAX [Suspect]
     Dosage: UNK, 3/W

REACTIONS (19)
  - WEIGHT INCREASED [None]
  - DISTURBANCE IN ATTENTION [None]
  - VOMITING PROJECTILE [None]
  - OFF LABEL USE [None]
  - ADVERSE EVENT [None]
  - HYPERHIDROSIS [None]
  - PARAESTHESIA [None]
  - DIARRHOEA [None]
  - VISUAL IMPAIRMENT [None]
  - HYPOAESTHESIA [None]
  - FEELING ABNORMAL [None]
  - ROAD TRAFFIC ACCIDENT [None]
  - LOSS OF CONSCIOUSNESS [None]
  - DRUG WITHDRAWAL SYNDROME [None]
  - APHAGIA [None]
  - FALL [None]
  - EYE MOVEMENT DISORDER [None]
  - NAUSEA [None]
  - TREMOR [None]
